FAERS Safety Report 6257150-7 (Version None)
Quarter: 2009Q3

REPORT INFORMATION
  Report Type: 
  Country: None (occurrence: None)
  Receive Date: 20090706
  Receipt Date: 20090323
  Transmission Date: 20100115
  Serious: No
  Sender: FDA-Public Use
  Company Number: US-BAYER-200917387NA

PATIENT
  Age: 39 Year
  Sex: Male
  Weight: 86 kg

DRUGS (1)
  1. ULTRAVIST 300 [Suspect]
     Indication: COMPUTERISED TOMOGRAM ABDOMEN
     Dosage: TOTAL DAILY DOSE: 150 ML
     Route: 042
     Dates: start: 20090320, end: 20090320

REACTIONS (3)
  - GENERALISED ERYTHEMA [None]
  - SNEEZING [None]
  - URTICARIA [None]
